FAERS Safety Report 7571369-4 (Version None)
Quarter: 2011Q2

REPORT INFORMATION
  Report Type: 
  Country: None (occurrence: None)
  Receive Date: 20110624
  Receipt Date: 20110615
  Transmission Date: 20111010
  Serious: Yes (Hospitalization)
  Sender: FDA-Public Use
  Company Number: B0728424A

PATIENT
  Sex: Male

DRUGS (4)
  1. BENDROFLUMETHIAZIDE [Suspect]
     Indication: ESSENTIAL HYPERTENSION
     Route: 065
     Dates: end: 20110301
  2. METFORMIN HCL [Suspect]
     Indication: DIABETES MELLITUS
     Route: 065
     Dates: end: 20110301
  3. MELPHALAN HYDROCHLORIDE [Suspect]
     Indication: MULTIPLE MYELOMA
     Route: 065
  4. ACETYLSALICYLIC ACID SRT [Suspect]
     Indication: CARDIAC DISORDER
     Route: 065
     Dates: end: 20110301

REACTIONS (4)
  - PNEUMONIA [None]
  - DIARRHOEA [None]
  - NAUSEA [None]
  - GASTROENTERITIS [None]
